FAERS Safety Report 5169570-2 (Version None)
Quarter: 2006Q4

REPORT INFORMATION
  Report Type: 
  Country: None (occurrence: None)
  Receive Date: 20061204
  Receipt Date: 20061121
  Transmission Date: 20070319
  Serious: Yes (Hospitalization)
  Sender: FDA-Public Use
  Company Number: 2006BI014281

PATIENT
  Sex: Male
  Weight: 95.2554 kg

DRUGS (4)
  1. AVONEX [Suspect]
     Indication: MULTIPLE SCLEROSIS
     Dosage: 30 UG; QW; IM
     Route: 030
     Dates: start: 19990130, end: 20030801
  2. AVONEX [Suspect]
     Indication: MULTIPLE SCLEROSIS
     Dosage: 30 UG; QW; IM
     Route: 030
     Dates: start: 20030801
  3. LITHIUM CARBONATE [Concomitant]
     Indication: MULTIPLE SCLEROSIS
     Dates: start: 20030801
  4. .. [Concomitant]

REACTIONS (1)
  - TREMOR [None]
